FAERS Safety Report 8105816-6 (Version None)
Quarter: 2012Q1

REPORT INFORMATION
  Report Type: 
  Country: None (occurrence: None)
  Receive Date: 20120201
  Receipt Date: 20111025
  Transmission Date: 20120608
  Serious: Yes (Other)
  Sender: FDA-Public Use
  Company Number: PHHY2011RU115469

PATIENT
  Age: 58 Year
  Sex: Female

DRUGS (3)
  1. LEVOTHYROXINE SODIUM [Concomitant]
  2. IRBESARTAN [Concomitant]
  3. ZOLEDRONOC ACID [Suspect]
     Route: 042

REACTIONS (5)
  - DIZZINESS [None]
  - ASTHENIA [None]
  - DRY MOUTH [None]
  - THIRST [None]
  - CHILLS [None]
